FAERS Safety Report 7421361-5 (Version None)
Quarter: 2011Q2

REPORT INFORMATION
  Report Type: 
  Country: None (occurrence: None)
  Receive Date: 20110418
  Receipt Date: 20110411
  Transmission Date: 20111010
  Serious: Yes (Hospitalization)
  Sender: FDA-Public Use
  Company Number: US-B.I. PHARMACEUTICALS,INC./RIDGEFIELD-2011-BP-10500BP

PATIENT
  Sex: Male

DRUGS (11)
  1. PRADAXA [Suspect]
     Dosage: 300 MG
     Route: 048
     Dates: start: 20110128, end: 20110328
  2. NAMENDA [Concomitant]
     Indication: MEMORY IMPAIRMENT
     Dosage: 20 MG
     Route: 048
     Dates: start: 20060101
  3. PRADAXA [Suspect]
     Dosage: 150 MG
     Route: 048
     Dates: start: 20110329
  4. PRILOSEC [Concomitant]
     Indication: ABDOMINAL DISCOMFORT
     Route: 048
     Dates: start: 20060101
  5. CELEXA [Concomitant]
     Indication: ANXIETY
     Dosage: 20 MG
     Route: 048
     Dates: start: 20060101
  6. BISOPROLOL [Concomitant]
     Indication: CARDIAC DISORDER
     Dosage: 20 MG
     Route: 048
     Dates: start: 20060101
  7. FUROSEMIDE [Concomitant]
     Indication: FLUID RETENTION
     Dosage: 20 MG
     Route: 048
     Dates: start: 20060101
  8. PROPYLTHIOURACIL [Concomitant]
     Indication: HYPERTHYROIDISM
     Dosage: 150 MG
     Route: 048
     Dates: start: 20060101
  9. OSTEO-BIFLEX [Concomitant]
     Indication: ARTHRITIS
     Route: 048
  10. DIGOXIN [Concomitant]
     Indication: CARDIAC DISORDER
     Dosage: 0.125MG M,W AND F ONLY
     Route: 048
     Dates: start: 20060101
  11. VITAMIN D [Concomitant]
     Indication: ARTHRITIS
     Dosage: 10,000 IU
     Route: 048

REACTIONS (2)
  - PYREXIA [None]
  - PROSTATITIS [None]
